FAERS Safety Report 6644910-3 (Version None)
Quarter: 2010Q1

REPORT INFORMATION
  Report Type: 
  Country: None (occurrence: None)
  Receive Date: 20100322
  Receipt Date: 20100311
  Transmission Date: 20100710
  Serious: No
  Sender: FDA-Public Use
  Company Number: US-BAXTER-2010BH004013

PATIENT
  Sex: Female
  Weight: 102 kg

DRUGS (2)
  1. HEPARIN SODIUM INJECTION [Suspect]
     Indication: MYOCARDIAL INFARCTION
     Route: 065
  2. ACETAMINOPHEN [Concomitant]
     Indication: DRUG USE FOR UNKNOWN INDICATION
     Route: 065

REACTIONS (1)
  - ADVERSE EVENT [None]
